FAERS Safety Report 4335874-6 (Version None)
Quarter: 2004Q2

REPORT INFORMATION
  Report Type: 
  Country: None (occurrence: None)
  Receive Date: 20040405
  Receipt Date: 20040111
  Transmission Date: 20050107
  Serious: Yes (Death, Life-Threatening, Hospitalization)
  Sender: FDA-Public Use
  Company Number: NSADSS2002031147

PATIENT
  Age: 83 Year
  Sex: Female
  Weight: 55 kg

DRUGS (9)
  1. GALANTAMINE (GALANTAMINE) TABLETS [Suspect]
     Indication: DEMENTIA ALZHEIMER'S TYPE
     Dosage: 4 MG, 2 IN 1 DAY, ORAL
     Route: 048
     Dates: start: 20020829, end: 20020905
  2. MULTIVITAMIN [Concomitant]
  3. CITALOPRAM [Concomitant]
  4. OXYBUTYNIN [Concomitant]
  5. ENTERIC COATED ASA (ACETYLSALICYLIC ACID) [Concomitant]
  6. PREMARIN [Concomitant]
  7. SYNTHROID [Concomitant]
  8. VITAMIN C (ASCORBIC ACID) [Concomitant]
  9. VITAMIN E [Concomitant]

REACTIONS (19)
  - ALANINE AMINOTRANSFERASE INCREASED [None]
  - ASPARTATE AMINOTRANSFERASE INCREASED [None]
  - ATRIAL FIBRILLATION [None]
  - BLOOD GLUCOSE INCREASED [None]
  - BLOOD POTASSIUM INCREASED [None]
  - CARDIAC FAILURE CONGESTIVE [None]
  - CEREBROVASCULAR ACCIDENT [None]
  - DELIRIUM [None]
  - FEELING ABNORMAL [None]
  - HYPOTENSION [None]
  - INSOMNIA [None]
  - MYOCARDIAL INFARCTION [None]
  - NAUSEA [None]
  - NEUTROPHIL COUNT INCREASED [None]
  - PERIPHERAL EMBOLISM [None]
  - PNEUMONIA [None]
  - SYNCOPE [None]
  - VOMITING [None]
  - WHITE BLOOD CELL COUNT INCREASED [None]
